FAERS Safety Report 15022507 (Version 1)
Quarter: 2018Q2

REPORT INFORMATION
  Report Type: Spontaneous
  Country: US (occurrence: US)
  Receive Date: 20180618
  Receipt Date: 20180618
  Transmission Date: 20180711
  Serious: Yes (Life-Threatening)
  Sender: FDA-Public Use
  Company Number: US-ABBVIE-18P-163-2390592-00

PATIENT
  Age: 1 Day
  Sex: Female
  Weight: 1.03 kg

DRUGS (1)
  1. SURVANTA [Suspect]
     Active Substance: BERACTANT
     Indication: RESPIRATORY DISTRESS
     Dosage: INTRATRACHIAL, 4 ML VIAL
     Route: 039
     Dates: start: 20180609, end: 20180609

REACTIONS (4)
  - Product quality issue [Unknown]
  - Pulmonary haemorrhage [Recovered/Resolved]
  - Oxygen saturation decreased [Recovered/Resolved]
  - Endotracheal intubation complication [Recovered/Resolved]

NARRATIVE: CASE EVENT DATE: 20180609
